FAERS Safety Report 13980966 (Version 1)
Quarter: 2017Q3

REPORT INFORMATION
  Report Type: Spontaneous
  Country: US (occurrence: US)
  Receive Date: 20170918
  Receipt Date: 20170918
  Transmission Date: 20171128
  Serious: No
  Sender: FDA-Public Use
  Company Number: US-TEVA-774664ACC

PATIENT
  Age: 47 Year
  Sex: Female
  Weight: 97.51 kg

DRUGS (8)
  1. RANITIDINE. [Concomitant]
     Active Substance: RANITIDINE
  2. ZOLOFT [Interacting]
     Active Substance: SERTRALINE HYDROCHLORIDE
     Indication: DEPRESSION
     Dosage: 100 MILLIGRAM DAILY;
     Route: 048
  3. VITAMIN K [Concomitant]
     Active Substance: PHYTONADIONE
  4. VITAMIN D3 [Concomitant]
     Active Substance: CHOLECALCIFEROL
  5. CLONAZEPAM. [Concomitant]
     Active Substance: CLONAZEPAM
  6. FEXOFENADINE 60 MG 425 [Suspect]
     Active Substance: FEXOFENADINE HYDROCHLORIDE
     Indication: MASTOCYTOSIS
     Dosage: 120 MILLIGRAM DAILY;
     Route: 048
     Dates: start: 20170501
  7. VITAMIN A [Concomitant]
     Active Substance: VITAMIN A
  8. OXYGEN. [Concomitant]
     Active Substance: OXYGEN

REACTIONS (4)
  - Blood pressure increased [Recovering/Resolving]
  - Drug interaction [Unknown]
  - Vertigo [Recovered/Resolved]
  - Off label use [Unknown]

NARRATIVE: CASE EVENT DATE: 201705
